FAERS Safety Report 25849247 (Version 1)
Quarter: 2025Q3

REPORT INFORMATION
  Report Type: Spontaneous
  Country: EU (occurrence: EU)
  Receive Date: 20250925
  Receipt Date: 20250925
  Transmission Date: 20251020
  Serious: Yes (Other)
  Sender: JOHNSON AND JOHNSON
  Company Number: EU-BAYER-2025A123026

PATIENT
  Age: 79 Year
  Sex: Female

DRUGS (3)
  1. XARELTO [Suspect]
     Active Substance: RIVAROXABAN
     Indication: Atrial fibrillation
     Dosage: 10 MG PER DAY FOR 5 YEAR
     Route: 048
  2. XARELTO [Suspect]
     Active Substance: RIVAROXABAN
     Dosage: 20 MG PER DAY
     Route: 048
     Dates: start: 202508
  3. XARELTO [Suspect]
     Active Substance: RIVAROXABAN
     Dosage: 15 MG PER DAY
     Route: 048
     Dates: start: 2025

REACTIONS (3)
  - Cataract operation [Unknown]
  - Mouth haemorrhage [Not Recovered/Not Resolved]
  - Gingivitis [Unknown]
